FAERS Safety Report 18015579 (Version 1)
Quarter: 2020Q3

REPORT INFORMATION
  Report Type: Spontaneous
  Country: DE (occurrence: DE)
  Receive Date: 20200713
  Receipt Date: 20200713
  Transmission Date: 20201103
  Serious: Yes (Other)
  Sender: FDA-Public Use
  Company Number: NVSC2020DE195520

PATIENT
  Age: 78 Year
  Sex: Male

DRUGS (1)
  1. MTX HEXAL 20 MG/ML [Suspect]
     Active Substance: METHOTREXATE SODIUM
     Indication: PRODUCT USED FOR UNKNOWN INDICATION
     Dosage: UNK
     Route: 065

REACTIONS (2)
  - Bladder cancer [Unknown]
  - Blood creatinine increased [Unknown]
